FAERS Safety Report 8649978 (Version 3)
Quarter: 2012Q4

REPORT INFORMATION
  Report Type: Report from Study
  Country: HR (occurrence: HR)
  Receive Date: 20120705
  Receipt Date: 20120829
  Transmission Date: 20130627
  Serious: Yes (Hospitalization)
  Sender: FDA-Public Use
  Company Number: HR-GENZYME-CAMP-1002301

PATIENT
  Age: 29 Year
  Sex: Female
  Weight: 65.5 kg

DRUGS (4)
  1. ALEMTUZUMAB [Suspect]
     Indication: MULTIPLE SCLEROSIS
     Dosage: 12 mg, qd
     Route: 042
     Dates: start: 20091006, end: 20091008
  2. ALEMTUZUMAB [Suspect]
     Dosage: 12 mg, qd
     Route: 042
     Dates: start: 20080929, end: 20081003
  3. METHYLPREDNISOLONE [Concomitant]
     Indication: MULTIPLE SCLEROSIS
     Dosage: 1.0 g, qd
     Dates: start: 20080929, end: 20081001
  4. METHYLPREDNISOLONE [Concomitant]
     Indication: MULTIPLE SCLEROSIS
     Dosage: 1.0 g, qd
     Dates: start: 20091006, end: 20091008

REACTIONS (1)
  - Hyperthyroidism [Recovered/Resolved with Sequelae]
